FAERS Safety Report 7580365-2 (Version None)
Quarter: 2011Q2

REPORT INFORMATION
  Report Type: 
  Country: None (occurrence: None)
  Receive Date: 20110629
  Receipt Date: 20110614
  Transmission Date: 20111010
  Serious: Yes (Hospitalization)
  Sender: FDA-Public Use
  Company Number: US-ROCHE-784733

PATIENT
  Age: 32 Year
  Sex: Female
  Weight: 64.7 kg

DRUGS (7)
  1. FOLIC ACID [Concomitant]
  2. ALLEGRA [Concomitant]
  3. LANSOPRAZOLE [Concomitant]
  4. BEVACIZUMAB [Suspect]
     Indication: NEUROFIBROMATOSIS
     Dosage: FREQUENCY: OVER 30-90 MINS EVERY 3 WEEK. LAST DOSE PRIOR TO SAE: 01 FEB 2011.
     Route: 042
     Dates: start: 20101109
  5. CYMBALTA [Suspect]
     Route: 065
  6. NPLATE [Concomitant]
  7. CYMBALTA [Suspect]
     Route: 065

REACTIONS (1)
  - IDIOPATHIC THROMBOCYTOPENIC PURPURA [None]
